FAERS Safety Report 14749551 (Version 2)
Quarter: 2018Q4

REPORT INFORMATION
  Report Type: Report from Study
  Country: JP (occurrence: JP)
  Receive Date: 20180411
  Receipt Date: 20181102
  Transmission Date: 20190204
  Serious: Yes (Other)
  Sender: FDA-Public Use
  Company Number: JP-009507513-1804JPN000731J

PATIENT
  Age: 75 Year
  Sex: Female
  Weight: 52 kg

DRUGS (1)
  1. KEYTRUDA [Suspect]
     Active Substance: PEMBROLIZUMAB
     Indication: TRANSITIONAL CELL CARCINOMA
     Dosage: 200 MILLIGRAM, Q3W
     Route: 041
     Dates: start: 20180214, end: 20180214

REACTIONS (3)
  - Atrial fibrillation [Not Recovered/Not Resolved]
  - Hyperthyroidism [Recovered/Resolved]
  - Palpitations [Unknown]

NARRATIVE: CASE EVENT DATE: 20180318
